FAERS Safety Report 11828633 (Version 1)
Quarter: 2015Q4

REPORT INFORMATION
  Report Type: Spontaneous
  Country: AT (occurrence: AT)
  Receive Date: 20151211
  Receipt Date: 20151211
  Transmission Date: 20160305
  Serious: Yes (Hospitalization, Other)
  Sender: FDA-Public Use
  Company Number: AT-GLAXOSMITHKLINE-AT2012GSK000365

PATIENT
  Age: 56 Year
  Sex: Male

DRUGS (7)
  1. AMLODIPIN [Concomitant]
     Active Substance: AMLODIPINE BESYLATE
     Dosage: 10 MG, 10 MG, 1 + 0 + 0,5
  2. HYDROCHLOROTHIAZIDE. [Concomitant]
     Active Substance: HYDROCHLOROTHIAZIDE
     Dosage: 12.5 MG, QD
  3. OMACOR [Suspect]
     Active Substance: OMEGA-3-ACID ETHYL ESTERS
     Indication: PRODUCT USED FOR UNKNOWN INDICATION
     Dosage: 400 MG, QD
     Route: 048
     Dates: start: 20091222, end: 20100105
  4. BENSERAZIDE [Concomitant]
     Active Substance: BENSERAZIDE
     Dosage: 12.5 MG, QID
  5. BEZAFIBRAT [Concomitant]
     Dosage: 400 MG, QD
  6. LEVODOPA [Concomitant]
     Active Substance: LEVODOPA
     Dosage: 50 MG, QID
  7. VALSARTAN. [Concomitant]
     Active Substance: VALSARTAN
     Dosage: 160 MG, 1 + 0 + 0,5

REACTIONS (1)
  - Cardiac failure [Recovered/Resolved]
